FAERS Safety Report 9465018 (Version 2)
Quarter: 2013Q3

REPORT INFORMATION
  Report Type: Spontaneous
  Country: JP (occurrence: JP)
  Receive Date: 20130819
  Receipt Date: 20130819
  Transmission Date: 20140515
  Serious: Yes (Other)
  Sender: FDA-Public Use
  Company Number: JP-NAPPMUNDI-GBR-2013-0015315

PATIENT
  Sex: Female

DRUGS (4)
  1. OXYCODONE HCL PR TABLET [Suspect]
     Indication: PRODUCT USED FOR UNKNOWN INDICATION
     Dosage: 70 MG, DAILY
     Route: 048
  2. OXYCODONE HCL PR TABLET [Suspect]
     Dosage: 80 MG, DAILY
     Route: 048
  3. OXYCODONE HCL PR TABLET [Suspect]
     Dosage: 60 MG, DAILY
     Route: 048
  4. OXYCODONE HCL IR POWDER 0.5% [Suspect]
     Indication: PRODUCT USED FOR UNKNOWN INDICATION
     Dosage: 20 MG, DAILY
     Route: 048

REACTIONS (1)
  - Delirium [Recovered/Resolved]
